FAERS Safety Report 13560286 (Version 1)
Quarter: 2017Q2

REPORT INFORMATION
  Report Type: Spontaneous
  Country: US (occurrence: US)
  Receive Date: 20170518
  Receipt Date: 20170518
  Transmission Date: 20170830
  Serious: No
  Sender: FDA-Public Use
  Company Number: US-MYLANLABS-2016M1047192

PATIENT
  Sex: Female

DRUGS (1)
  1. VUSION [Suspect]
     Active Substance: MICONAZOLE NITRATE\PETROLATUM\ZINC OXIDE
     Indication: DERMATITIS DIAPER
     Dosage: UNK
     Route: 061

REACTIONS (2)
  - Condition aggravated [Unknown]
  - Erythema [Unknown]
